FAERS Safety Report 8766034 (Version 1)
Quarter: 2012Q4

REPORT INFORMATION
  Report Type: 
  Country: JP (occurrence: JP)
  Receive Date: 20120904
  Receipt Date: 20120904
  Transmission Date: 20130627
  Serious: Yes (Other)
  Sender: FDA-Public Use
  Company Number: JP-ROCHE-1007391

PATIENT
  Age: 73 Year
  Sex: Female

DRUGS (10)
  1. MIRCERA [Suspect]
     Indication: NEPHROGENIC ANAEMIA
     Dosage: Dosage is uncertain.
     Route: 042
     Dates: start: 20111013, end: 20111102
  2. DALTEPARIN SODIUM [Concomitant]
     Route: 042
     Dates: start: 20110910, end: 20111001
  3. DALTEPARIN SODIUM [Concomitant]
     Route: 042
     Dates: start: 20111004, end: 20111018
  4. DALTEPARIN SODIUM [Concomitant]
     Route: 042
     Dates: start: 20111020
  5. CALTAN [Concomitant]
     Route: 048
     Dates: start: 20110910
  6. WARFARIN [Concomitant]
     Route: 048
     Dates: start: 20110910
  7. ONEALFA [Concomitant]
     Route: 048
     Dates: start: 20110910
  8. NEUROTROPIN [Concomitant]
     Route: 048
     Dates: start: 20110910
  9. MAINTATE [Concomitant]
     Indication: HYPERTENSION
     Route: 048
     Dates: start: 20110910
  10. SENNOSIDE [Concomitant]
     Route: 048
     Dates: start: 20110910

REACTIONS (2)
  - Anaphylactic shock [Recovering/Resolving]
  - Overdose [Unknown]
